FAERS Safety Report 8179368-9 (Version None)
Quarter: 2012Q1

REPORT INFORMATION
  Report Type: 
  Country: None (occurrence: None)
  Receive Date: 20120302
  Receipt Date: 20120221
  Transmission Date: 20120608
  Serious: Yes (Hospitalization, Other)
  Sender: FDA-Public Use
  Company Number: US-BAYER-2011-080700

PATIENT
  Age: 22 Year
  Sex: Female
  Weight: 73.469 kg

DRUGS (2)
  1. YAZ [Suspect]
     Indication: ACNE
     Dosage: UNK
     Dates: start: 20080701, end: 20090720
  2. YAZ [Suspect]
     Indication: MENSTRUATION IRREGULAR

REACTIONS (9)
  - PAIN [None]
  - ANXIETY [None]
  - DYSPNOEA [None]
  - DEEP VEIN THROMBOSIS [None]
  - GENERAL PHYSICAL HEALTH DETERIORATION [None]
  - MENTAL DISORDER [None]
  - PULMONARY EMBOLISM [None]
  - PAIN IN EXTREMITY [None]
  - EMOTIONAL DISTRESS [None]
